FAERS Safety Report 25378155 (Version 2)
Quarter: 2025Q3

REPORT INFORMATION
  Report Type: Spontaneous
  Country: JP (occurrence: JP)
  Receive Date: 20250530
  Receipt Date: 20250818
  Transmission Date: 20251021
  Serious: Yes (Hospitalization, Other)
  Sender: ROCHE
  Company Number: JP-CHUGAI-2025016396

PATIENT
  Age: 55 Year
  Sex: Female
  Weight: 54.2 kg

DRUGS (1)
  1. KADCYLA [Suspect]
     Active Substance: ADO-TRASTUZUMAB EMTANSINE
     Indication: Breast cancer
     Dosage: 180 MILLIGRAM, ONCE/3WEEKS
     Route: 042
     Dates: start: 20240122, end: 20250204

REACTIONS (7)
  - Hepatic steatosis [Not Recovered/Not Resolved]
  - Hepatic failure [Unknown]
  - Hepatic function abnormal [Unknown]
  - Generalised oedema [Not Recovered/Not Resolved]
  - Pleural effusion [Not Recovered/Not Resolved]
  - Ascites [Not Recovered/Not Resolved]
  - Hypoalbuminaemia [Unknown]

NARRATIVE: CASE EVENT DATE: 20250520
